FAERS Safety Report 11943266 (Version 1)
Quarter: 2016Q1

REPORT INFORMATION
  Report Type: Spontaneous
  Country: US (occurrence: US)
  Receive Date: 20160125
  Receipt Date: 20160125
  Transmission Date: 20160526
  Serious: Yes (Hospitalization)
  Sender: FDA-Public Use
  Company Number: US-UNITED THERAPEUTICS-UNT-2015-012476

PATIENT
  Age: 78 Year
  Sex: Male
  Weight: 64.85 kg

DRUGS (3)
  1. LASIX [Suspect]
     Active Substance: FUROSEMIDE
     Indication: PRODUCT USED FOR UNKNOWN INDICATION
  2. REVATIO [Suspect]
     Active Substance: SILDENAFIL CITRATE
     Indication: PRODUCT USED FOR UNKNOWN INDICATION
  3. REMODULIN [Suspect]
     Active Substance: TREPROSTINIL
     Indication: PULMONARY ARTERIAL HYPERTENSION
     Dosage: 0.001875 ?G/KG, CONTINUING
     Route: 041
     Dates: start: 20150929

REACTIONS (6)
  - Flushing [Unknown]
  - Oedema peripheral [Unknown]
  - Pain [Unknown]
  - Nausea [Unknown]
  - Thrombosis in device [Unknown]
  - Hypotension [Unknown]

NARRATIVE: CASE EVENT DATE: 201510
